FAERS Safety Report 4405865-5 (Version None)
Quarter: 2004Q3

REPORT INFORMATION
  Report Type: 
  Country: None (occurrence: None)
  Receive Date: 20040723
  Receipt Date: 20040121
  Transmission Date: 20050211
  Serious: No
  Sender: FDA-Public Use
  Company Number: US-GLAXOSMITHKLINE-A0494488A

PATIENT
  Age: 85 Year
  Sex: Male

DRUGS (8)
  1. AVANDIA [Suspect]
     Dosage: 2MG PER DAY
     Route: 048
  2. ASPIRIN [Concomitant]
  3. GLYBURIDE [Concomitant]
  4. GARLIC [Concomitant]
  5. ALTACE [Concomitant]
  6. GLUCOSAMINE [Concomitant]
  7. DOXAZOSIN [Concomitant]
  8. LIPITOR [Concomitant]

REACTIONS (1)
  - BLOOD GLUCOSE INCREASED [None]
